FAERS Safety Report 10414213 (Version 1)
Quarter: 2014Q3

REPORT INFORMATION
  Report Type: Spontaneous
  Country: IN (occurrence: IN)
  Receive Date: 20140827
  Receipt Date: 20140827
  Transmission Date: 20150326
  Serious: Yes (Hospitalization, Other)
  Sender: FDA-Public Use
  Company Number: ALCN2014IN004728

PATIENT
  Age: 11 Year
  Sex: Male

DRUGS (4)
  1. CLAMENTIN (AMOXICILLIN/CLAVULANIC ACID) [Concomitant]
     Indication: DACRYOADENITIS ACQUIRED
     Dosage: 375 MG, BID
     Route: 048
  2. TOBRAMYCIN [Suspect]
     Active Substance: TOBRAMYCIN
     Indication: DACRYOADENITIS ACQUIRED
     Dosage: 1 GTT, QID
     Route: 047
  3. PARACETAMOL [Concomitant]
     Active Substance: ACETAMINOPHEN
     Indication: PYREXIA
  4. PARACETAMOL [Concomitant]
     Active Substance: ACETAMINOPHEN
     Indication: PAIN
     Dosage: 250 MG, PRN
     Route: 048

REACTIONS (5)
  - Erythema of eyelid [Recovered/Resolved]
  - Eyelid oedema [Recovered/Resolved]
  - Pupillary reflex impaired [Recovered/Resolved]
  - Eyelid pain [Recovered/Resolved]
  - Eyelid ptosis [Recovered/Resolved]
